FAERS Safety Report 7273316-1 (Version None)
Quarter: 2011Q1

REPORT INFORMATION
  Report Type: 
  Country: None (occurrence: None)
  Receive Date: 20110126
  Receipt Date: 20110111
  Transmission Date: 20110831
  Serious: Yes (Hospitalization, Other)
  Sender: FDA-Public Use
  Company Number: 025667

PATIENT
  Age: 8 Year
  Sex: Male
  Weight: 43 kg

DRUGS (1)
  1. EQUASYM (EQUASYM) [Suspect]
     Indication: ATTENTION DEFICIT/HYPERACTIVITY DISORDER
     Dosage: (5 MG TID ORAL)
     Route: 048
     Dates: start: 20101125, end: 20101217

REACTIONS (1)
  - EPILEPSY [None]
